FAERS Safety Report 20794797 (Version 1)
Quarter: 2022Q2

REPORT INFORMATION
  Report Type: Report from Study
  Country: US (occurrence: US)
  Receive Date: 20220506
  Receipt Date: 20220506
  Transmission Date: 20220721
  Serious: Yes (Hospitalization, Other)
  Sender: FDA-Public Use
  Company Number: US-MYLANLABS-2022M1033255

PATIENT
  Age: 13 Month
  Sex: Female

DRUGS (13)
  1. PROPRANOLOL [Suspect]
     Active Substance: PROPRANOLOL HYDROCHLORIDE
     Indication: Long QT syndrome
     Dosage: 12.4 MILLIGRAM, TID
     Route: 065
  2. PROPRANOLOL [Suspect]
     Active Substance: PROPRANOLOL HYDROCHLORIDE
     Indication: Ventricular fibrillation
     Dosage: 4.5 MILLIGRAM/KILOGRAM, QD
     Route: 065
  3. PROPRANOLOL [Suspect]
     Active Substance: PROPRANOLOL HYDROCHLORIDE
     Indication: Ventricular tachycardia
     Dosage: UNK, DOSE INCREASED
     Route: 065
  4. PROPRANOLOL [Suspect]
     Active Substance: PROPRANOLOL HYDROCHLORIDE
     Indication: Torsade de pointes
  5. LIDOCAINE [Suspect]
     Active Substance: LIDOCAINE
     Indication: Long QT syndrome
     Dosage: UNK, INITIAL DOSE UNKNOWN
     Route: 042
  6. LIDOCAINE [Suspect]
     Active Substance: LIDOCAINE
     Indication: Ventricular fibrillation
     Dosage: UNK, DOSE: 20 MICROG/KG/MINUTE
     Route: 042
  7. LIDOCAINE [Suspect]
     Active Substance: LIDOCAINE
     Indication: Torsade de pointes
  8. LIDOCAINE [Suspect]
     Active Substance: LIDOCAINE
     Indication: Ventricular tachycardia
  9. FLECAINIDE [Suspect]
     Active Substance: FLECAINIDE
     Indication: Long QT syndrome
     Dosage: 10 MILLIGRAM, BID
     Route: 065
  10. MEXILETINE [Suspect]
     Active Substance: MEXILETINE
     Indication: Long QT syndrome
     Dosage: 7 MILLIGRAM/KILOGRAM
     Route: 065
  11. MEXILETINE [Suspect]
     Active Substance: MEXILETINE
     Indication: Ventricular fibrillation
     Dosage: UNK, DOSE INCREASED
     Route: 065
  12. MEXILETINE [Suspect]
     Active Substance: MEXILETINE
     Indication: Ventricular tachycardia
  13. MEXILETINE [Suspect]
     Active Substance: MEXILETINE
     Indication: Torsade de pointes

REACTIONS (3)
  - Drug ineffective [Unknown]
  - Dizziness [Unknown]
  - Off label use [Unknown]
